FAERS Safety Report 21234416 (Version 1)
Quarter: 2022Q3

REPORT INFORMATION
  Report Type: Spontaneous
  Country: NP (occurrence: NP)
  Receive Date: 20220820
  Receipt Date: 20220820
  Transmission Date: 20221027
  Serious: Yes (Life-Threatening, Hospitalization)
  Sender: FDA-Public Use
  Company Number: NP-STRIDES ARCOLAB LIMITED-2022SP010541

PATIENT
  Age: 25 Year
  Sex: Male

DRUGS (4)
  1. AMLODIPINE [Suspect]
     Active Substance: AMLODIPINE BESYLATE
     Indication: Product used for unknown indication
     Dosage: 100 MILLIGRAM (TAKEN 10 TABLETS OF AMLODIPINE (10 MG/TABLET, TOTAL 100 MG)
     Route: 048
  2. CLONAZEPAM [Suspect]
     Active Substance: CLONAZEPAM
     Indication: Product used for unknown indication
     Dosage: 15 MILLIGRAM (INGESTION OF 30 TABLETS OF CLONAZEPAM (0.5 MG/TABLET, TOTAL 15 MG)
     Route: 048
  3. CLONAZEPAM [Suspect]
     Active Substance: CLONAZEPAM
     Dosage: 30 MILLIGRAM (INGESTED 60 TABLETS OF CLONAZEPAM (0.5 MG/TABLET, TOTAL 30 MG)
     Route: 048
  4. SERTRALINE [Concomitant]
     Active Substance: SERTRALINE HYDROCHLORIDE
     Indication: Depression
     Dosage: UNK
     Route: 065

REACTIONS (11)
  - Suicide attempt [Unknown]
  - Loss of consciousness [Recovered/Resolved]
  - Hypokalaemia [Unknown]
  - Respiratory alkalosis [Unknown]
  - Electrocardiogram T wave abnormal [Unknown]
  - Electrocardiogram QT prolonged [Unknown]
  - Intentional product misuse [Unknown]
  - Sinus tachycardia [Unknown]
  - Hypotension [Unknown]
  - Toxicity to various agents [Unknown]
  - Intentional overdose [Unknown]
